FAERS Safety Report 7807962-0 (Version None)
Quarter: 2011Q4

REPORT INFORMATION
  Report Type: 
  Country: None (occurrence: None)
  Receive Date: 20111011
  Receipt Date: 20111011
  Transmission Date: 20120403
  Serious: Yes (Other)
  Sender: FDA-Public Use
  Company Number: None

PATIENT
  Age: 69 Year
  Sex: Female
  Weight: 77.11 kg

DRUGS (1)
  1. PRAVASTATIN SODIUM [Suspect]
     Indication: BLOOD CHOLESTEROL INCREASED
     Dosage: 20 MG
     Route: 048
     Dates: start: 20110909, end: 20110929

REACTIONS (9)
  - OROPHARYNGEAL PAIN [None]
  - INFLUENZA [None]
  - RESTLESSNESS [None]
  - MUSCLE TIGHTNESS [None]
  - DIZZINESS [None]
  - MALAISE [None]
  - ANGIOEDEMA [None]
  - MUSCLE SPASMS [None]
  - BALANCE DISORDER [None]
